FAERS Safety Report 4893980-1 (Version None)
Quarter: 2006Q1

REPORT INFORMATION
  Report Type: 
  Country: None (occurrence: None)
  Receive Date: 20060127
  Receipt Date: 20050404
  Transmission Date: 20060701
  Serious: Yes (Other)
  Sender: FDA-Public Use
  Company Number: US-GLAXOSMITHKLINE-A0552586A

PATIENT
  Age: 39 Year
  Sex: Female

DRUGS (2)
  1. WELLBUTRIN [Suspect]
     Indication: POSTPARTUM DEPRESSION
     Dosage: 100MG TWICE PER DAY
     Route: 048
     Dates: start: 19960101
  2. NO CONCURRENT MEDICATION [Concomitant]

REACTIONS (4)
  - ANGER [None]
  - CRYING [None]
  - FRUSTRATION [None]
  - SUICIDAL IDEATION [None]
